FAERS Safety Report 14326280 (Version 2)
Quarter: 2018Q1

REPORT INFORMATION
  Report Type: Spontaneous
  Country: FR (occurrence: FR)
  Receive Date: 20171226
  Receipt Date: 20180104
  Transmission Date: 20180509
  Serious: Yes (Other)
  Sender: FDA-Public Use
  Company Number: FR-MERCK KGAA-2037786

PATIENT
  Age: 59 Year
  Sex: Female

DRUGS (2)
  1. NOVOTHYROX [Suspect]
     Active Substance: LEVOTHYROXINE SODIUM
     Indication: HYPOTHYROIDISM
     Dates: start: 201706, end: 201709
  2. LEVOTHYROXINE SODIUM. [Suspect]
     Active Substance: LEVOTHYROXINE SODIUM
     Dates: start: 201709, end: 201710

REACTIONS (11)
  - Hyperthyroidism [None]
  - Blood thyroid stimulating hormone decreased [None]
  - Thyroxine decreased [None]
  - Fatigue [None]
  - Disturbance in attention [None]
  - Palpitations [None]
  - Tri-iodothyronine decreased [None]
  - Hypertension [None]
  - Visual impairment [None]
  - Initial insomnia [None]
  - Head discomfort [None]

NARRATIVE: CASE EVENT DATE: 2017
